FAERS Safety Report 8902427 (Version 1)
Quarter: 2012Q4

REPORT INFORMATION
  Report Type: 
  Country: SE (occurrence: SE)
  Receive Date: 20121112
  Receipt Date: 20121112
  Transmission Date: 20130627
  Serious: Yes (Hospitalization, Other)
  Sender: FDA-Public Use
  Company Number: SE-PFIZER INC-2012277536

PATIENT
  Sex: Male
  Weight: 90 kg

DRUGS (19)
  1. GENOTROPIN [Suspect]
     Dosage: 0.2 mg, 1x/day, 7 injections/week
     Route: 058
     Dates: start: 20110911
  2. ATENOLOL [Concomitant]
     Indication: HYPERTENSION
     Dosage: UNK
     Dates: start: 19960101
  3. PLENDIL [Concomitant]
     Indication: HYPERTENSION
     Dosage: UNK
     Dates: start: 19960101
  4. CLOMIPRAMIN [Concomitant]
     Indication: PARESTHESIA
     Dosage: UNK
     Dates: start: 20000101
  5. LEVOTHYROXINE [Concomitant]
     Indication: THYROID STIMULATING HORMONE DECREASED
     Dosage: UNK
     Dates: start: 20010130
  6. LEVOTHYROXINE [Concomitant]
     Indication: PRIMARY HYPOTHYROIDISM
  7. LIOTHYRONINE [Concomitant]
     Indication: BLOOD THYROID STIMULATING HORMONE DECREASED
     Dosage: UNK
     Dates: start: 20030709
  8. LIOTHYRONINE [Concomitant]
     Indication: PRIMARY HYPOTHYROIDISM
  9. KORTISON [Concomitant]
     Indication: BLOOD CORTICOTROPHIN DECREASED
     Dosage: UNK
     Dates: start: 20040922
  10. MINIRIN/FRTSTORKAT [Concomitant]
     Indication: BLOOD ANTIDIURETIC HORMONE DECREASED
     Dosage: UNK
     Dates: start: 20080402
  11. DICLOFENAC [Concomitant]
     Indication: PAIN IN JOINT
     Dosage: UNK
     Dates: start: 20080403
  12. IDEOS [Concomitant]
     Indication: OSTEOPOROSIS
     Dosage: UNK
     Dates: start: 20080403
  13. OMEPRAZOL [Concomitant]
     Indication: GASTRITIS
     Dosage: UNK
     Dates: start: 20080403
  14. PAPAVERIN [Concomitant]
     Indication: GALLSTONES
     Dosage: UNK
     Dates: start: 20080403
  15. NEBIDO [Concomitant]
     Indication: BLOOD LUTEINISING HORMONE DECREASED
     Dosage: UNK
     Dates: start: 20080710
  16. NEBIDO [Concomitant]
     Indication: BLOOD FOLLICLE STIMULATING HORMONE DECREASED
  17. NEBIDO [Concomitant]
     Indication: TESTICULAR HYPOGONADISM
  18. SIFROL [Concomitant]
     Dosage: UNK
     Dates: start: 20080914
  19. ALENAT [Concomitant]
     Dosage: UNK
     Dates: start: 20090630

REACTIONS (1)
  - Atrial fibrillation [Unknown]
